FAERS Safety Report 10953670 (Version 2)
Quarter: 2015Q2

REPORT INFORMATION
  Report Type: Spontaneous
  Country: CN (occurrence: CN)
  Receive Date: 20150325
  Receipt Date: 20150421
  Transmission Date: 20150821
  Serious: Yes (Death)
  Sender: FDA-Public Use
  Company Number: CN-UNITED THERAPEUTICS-UNT-2015-003079

PATIENT
  Age: 85 Year
  Sex: Female
  Weight: 60 kg

DRUGS (1)
  1. REMODULIN [Suspect]
     Active Substance: TREPROSTINIL
     Indication: PULMONARY ARTERIAL HYPERTENSION
     Dosage: 0.00125 ?G/KG, CONTINUING
     Route: 041
     Dates: start: 20150212, end: 20150310

REACTIONS (2)
  - Respiratory failure [Fatal]
  - Hypotension [Unknown]

NARRATIVE: CASE EVENT DATE: 20150212
